FAERS Safety Report 8161500-4 (Version None)
Quarter: 2012Q1

REPORT INFORMATION
  Report Type: 
  Country: None (occurrence: None)
  Receive Date: 20120224
  Receipt Date: 20120217
  Transmission Date: 20120608
  Serious: No
  Sender: FDA-Public Use
  Company Number: US-PFIZER INC-2012043653

PATIENT
  Sex: Female
  Weight: 58.957 kg

DRUGS (3)
  1. CELEXA [Concomitant]
     Indication: DEPRESSION
  2. CELEXA [Concomitant]
     Indication: ANXIETY
     Dosage: 40 MG, 1X/DAY
  3. XALKORI [Suspect]
     Indication: LUNG NEOPLASM MALIGNANT
     Dosage: 250 MG, 2X/DAY
     Route: 048
     Dates: start: 20111226

REACTIONS (1)
  - SENSATION OF FOREIGN BODY [None]
